FAERS Safety Report 21585073 (Version 1)
Quarter: 2022Q4

REPORT INFORMATION
  Report Type: Report from Study
  Country: US (occurrence: US)
  Receive Date: 20221111
  Receipt Date: 20221111
  Transmission Date: 20230112
  Serious: No
  Sender: FDA-Public Use
  Company Number: US-ABBVIE-22K-163-4487642-00

PATIENT
  Sex: Female

DRUGS (5)
  1. SKYRIZI [Suspect]
     Active Substance: RISANKIZUMAB-RZAA
     Indication: Psoriasis
     Route: 058
     Dates: start: 2022
  2. SKYRIZI [Suspect]
     Active Substance: RISANKIZUMAB-RZAA
     Indication: Psoriasis
     Dosage: AT WEEK FOUR AND THEN EVERY 12 WEEKS THEREAFTER
     Route: 058
     Dates: start: 20211231, end: 20211231
  3. CLOBETASOL SOL 0.05 [Concomitant]
     Indication: Product used for unknown indication
     Route: 065
  4. ESTRADIOL CRE 0.01 [Concomitant]
     Indication: Product used for unknown indication
     Dosage: ESTRADIOL CRE 0.01%
     Route: 065
  5. CLOTRIM/BETA CRE DIPROP [Concomitant]
     Indication: Product used for unknown indication

REACTIONS (2)
  - Fatigue [Not Recovered/Not Resolved]
  - Sinusitis [Not Recovered/Not Resolved]
